FAERS Safety Report 6297913-5 (Version None)
Quarter: 2009Q3

REPORT INFORMATION
  Report Type: 
  Country: None (occurrence: None)
  Receive Date: 20090805
  Receipt Date: 20090727
  Transmission Date: 20100115
  Serious: Yes (Hospitalization, Disabling, Other)
  Sender: FDA-Public Use
  Company Number: A0781641A

PATIENT
  Age: 52 Year
  Sex: Female

DRUGS (25)
  1. TYKERB [Suspect]
     Indication: BREAST CANCER
     Dosage: 1250MG PER DAY
     Route: 048
     Dates: start: 20081206, end: 20090426
  2. XELODA [Concomitant]
     Indication: BREAST CANCER
     Dosage: 1850MG TWICE PER DAY
     Route: 048
     Dates: start: 20081206, end: 20090424
  3. BLINDED STUDY MEDICATION [Concomitant]
  4. OTHER MEDICATIONS [Concomitant]
  5. ACIPHEX [Concomitant]
     Route: 048
     Dates: start: 19950101
  6. TRICOR [Concomitant]
     Route: 048
     Dates: start: 19950101
  7. POTASSIUM CHLORIDE [Concomitant]
     Route: 048
     Dates: start: 19950101
  8. HUMALOG [Concomitant]
     Dates: start: 19950101
  9. COMPETACT (PIOGLITAZONE + METFORMIN HYDROCHLORIDE) [Concomitant]
     Dates: start: 20030101
  10. LEXAPRO [Concomitant]
     Indication: DEPRESSION
     Route: 048
     Dates: start: 20080101
  11. SYMBICORT [Concomitant]
     Indication: ASTHMA
     Route: 055
     Dates: start: 20000101
  12. TORSEMIDE [Concomitant]
     Route: 048
     Dates: start: 20030101
  13. COLACE [Concomitant]
     Indication: CONSTIPATION
     Route: 048
     Dates: start: 20080101
  14. ALCLOX [Concomitant]
     Route: 048
     Dates: start: 20081222, end: 20081228
  15. MUCINEX DM [Concomitant]
     Route: 048
     Dates: start: 20081222, end: 20090115
  16. IMODIUM [Concomitant]
     Route: 048
     Dates: start: 20090413, end: 20090428
  17. ROBITUSSIN [Concomitant]
     Indication: COUGH
     Route: 048
     Dates: start: 20090423
  18. LOTRISONE [Concomitant]
     Indication: RASH
     Dates: start: 20090119, end: 20090425
  19. SENOKOT [Concomitant]
     Indication: CONSTIPATION
     Route: 048
     Dates: start: 20080401
  20. FENTANYL [Concomitant]
     Route: 062
  21. OXYCODONE AND ACETAMINOPHEN [Concomitant]
     Route: 048
     Dates: start: 20080401
  22. LEVOTHYROXINE SODIUM [Concomitant]
     Indication: HYPOTHYROIDISM
     Route: 048
     Dates: start: 19450101
  23. CADUET [Concomitant]
     Indication: HYPERTENSION
     Route: 048
  24. SINGULAIR [Concomitant]
     Indication: ASTHMA
     Dates: start: 20030101
  25. DIOVAN HCT [Concomitant]
     Indication: HYPERTENSION
     Route: 048
     Dates: start: 20030101

REACTIONS (16)
  - ANAEMIA [None]
  - DIARRHOEA [None]
  - DISEASE PROGRESSION [None]
  - DYSARTHRIA [None]
  - FATIGUE [None]
  - GAIT DISTURBANCE [None]
  - HAEMOGLOBIN DECREASED [None]
  - HEAD DEFORMITY [None]
  - HYPOKALAEMIA [None]
  - LETHARGY [None]
  - METASTASES TO CENTRAL NERVOUS SYSTEM [None]
  - MUSCULAR WEAKNESS [None]
  - NAIL BED BLEEDING [None]
  - ONYCHOCLASIS [None]
  - POSTURE ABNORMAL [None]
  - VISION BLURRED [None]
